FAERS Safety Report 17384598 (Version 1)
Quarter: 2020Q1

REPORT INFORMATION
  Report Type: Spontaneous
  Country: US (occurrence: US)
  Receive Date: 20200206
  Receipt Date: 20200206
  Transmission Date: 20200409
  Serious: No
  Sender: FDA-Public Use
  Company Number: US-ABBVIE-19K-163-2845496-00

PATIENT
  Sex: Female

DRUGS (1)
  1. HUMIRA [Suspect]
     Active Substance: ADALIMUMAB
     Indication: HIDRADENITIS
     Route: 058

REACTIONS (6)
  - Weight increased [Unknown]
  - Furuncle [Unknown]
  - Wound haemorrhage [Unknown]
  - Hidradenitis [Unknown]
  - Haemorrhage [Unknown]
  - Contusion [Unknown]
